FAERS Safety Report 23508075 (Version 3)
Quarter: 2025Q2

REPORT INFORMATION
  Report Type: Report from Study
  Country: IN (occurrence: None)
  Receive Date: 20240209
  Receipt Date: 20250513
  Transmission Date: 20250717
  Serious: Yes (Death)
  Sender: INCYTE
  Company Number: IN-002147023-NVSC2021IN163355

PATIENT
  Age: 76 Year

DRUGS (4)
  1. RUXOLITINIB [Suspect]
     Active Substance: RUXOLITINIB
     Indication: Primary myelofibrosis
     Dosage: 20 MG, BID
  2. RUXOLITINIB [Suspect]
     Active Substance: RUXOLITINIB
     Dosage: 20 MG, QD
  3. RUXOLITINIB [Suspect]
     Active Substance: RUXOLITINIB
     Dosage: 20 MG, BID
  4. RUXOLITINIB [Suspect]
     Active Substance: RUXOLITINIB
     Dosage: 20 MG, BID

REACTIONS (7)
  - Malignant neoplasm progression [Fatal]
  - Primary myelofibrosis [Fatal]
  - Lymphocyte count increased [Fatal]
  - Blood cholesterol increased [Fatal]
  - Blood creatine increased [Fatal]
  - Haemoglobin decreased [Fatal]
  - Inappropriate schedule of product administration [Fatal]
